FAERS Safety Report 16302206 (Version 1)
Quarter: 2019Q2

REPORT INFORMATION
  Report Type: Spontaneous
  Country: DE (occurrence: DE)
  Receive Date: 20190512
  Receipt Date: 20190512
  Transmission Date: 20190711
  Serious: Yes (Other)
  Sender: FDA-Public Use
  Company Number: PHHY2019DE103421

PATIENT
  Age: 49 Year
  Sex: Male

DRUGS (1)
  1. REVOLADE [Suspect]
     Active Substance: ELTROMBOPAG
     Indication: IMMUNE THROMBOCYTOPENIC PURPURA
     Dosage: 50 MG, QD
     Route: 065

REACTIONS (6)
  - Arterial occlusive disease [Unknown]
  - Peripheral coldness [Unknown]
  - Device occlusion [Unknown]
  - Brain oedema [Unknown]
  - Pulmonary embolism [Unknown]
  - Thrombocytopenia [Unknown]
